FAERS Safety Report 8234457-5 (Version None)
Quarter: 2012Q1

REPORT INFORMATION
  Report Type: 
  Country: None (occurrence: None)
  Receive Date: 20120326
  Receipt Date: 20120319
  Transmission Date: 20120608
  Serious: Yes (Death, Other)
  Sender: FDA-Public Use
  Company Number: US-ELI_LILLY_AND_COMPANY-US201203006193

PATIENT

DRUGS (3)
  1. GEMCITABINE HYDROCHLORIDE [Suspect]
     Indication: PANCREATIC CARCINOMA METASTATIC
     Dosage: 1000 MG/M2, WEEKLY (1/W)
  2. ERLOTINIB HYDROCHLORIDE [Concomitant]
     Indication: PANCREATIC CARCINOMA METASTATIC
     Dosage: 100 MG, QD
  3. PANITUMUMAB [Concomitant]
     Indication: PANCREATIC CARCINOMA METASTATIC
     Dosage: 4 MG/KG, Q 2 WEEKS

REACTIONS (1)
  - SMALL INTESTINAL HAEMORRHAGE [None]
